FAERS Safety Report 6675090-6 (Version None)
Quarter: 2010Q2

REPORT INFORMATION
  Report Type: 
  Country: None (occurrence: None)
  Receive Date: 20100409
  Receipt Date: 20100331
  Transmission Date: 20101027
  Serious: Yes (Disabling, Other)
  Sender: FDA-Public Use
  Company Number: IT-ABBOTT-09P-083-0609333-00

PATIENT
  Sex: Male
  Weight: 70 kg

DRUGS (1)
  1. HUMIRA [Suspect]
     Indication: PSORIASIS
     Route: 058
     Dates: start: 20090506, end: 20090929

REACTIONS (4)
  - BRONCHIAL WALL THICKENING [None]
  - COLON CANCER STAGE III [None]
  - METASTASES TO LYMPH NODES [None]
  - TUMOUR ULCERATION [None]
